FAERS Safety Report 9220916 (Version 1)
Quarter: 2013Q2

REPORT INFORMATION
  Report Type: Spontaneous
  Country: AU (occurrence: AU)
  Receive Date: 20130409
  Receipt Date: 20130409
  Transmission Date: 20140414
  Serious: Yes (Other)
  Sender: FDA-Public Use
  Company Number: AU-ROXANE LABORATORIES, INC.-2013-RO-00456RO

PATIENT
  Age: 39 Year
  Sex: Female

DRUGS (2)
  1. LORAZEPAM [Suspect]
     Indication: SCHIZOPHRENIA
     Dosage: 2 MG
  2. RISPERIDONE [Concomitant]
     Indication: SCHIZOPHRENIA

REACTIONS (3)
  - Psychotic disorder [Not Recovered/Not Resolved]
  - Catatonia [Recovered/Resolved]
  - Withdrawal syndrome [Recovered/Resolved]
